FAERS Safety Report 8396452-5 (Version None)
Quarter: 2012Q2

REPORT INFORMATION
  Report Type: 
  Country: None (occurrence: None)
  Receive Date: 20120530
  Receipt Date: 20120507
  Transmission Date: 20120825
  Serious: No
  Sender: FDA-Public Use
  Company Number: US-ASTRAZENECA-2012SE27382

PATIENT
  Age: 71 Year
  Sex: Female

DRUGS (2)
  1. PREVACID [Concomitant]
  2. NEXIUM [Suspect]
     Indication: HYPERCHLORHYDRIA
     Dosage: ONCE PER DAY
     Route: 048

REACTIONS (5)
  - DYSPHONIA [None]
  - PAIN [None]
  - GASTROOESOPHAGEAL REFLUX DISEASE [None]
  - DRUG PRESCRIBING ERROR [None]
  - RETCHING [None]
